FAERS Safety Report 4688543-7 (Version None)
Quarter: 2005Q2

REPORT INFORMATION
  Report Type: 
  Country: None (occurrence: None)
  Receive Date: 20050609
  Receipt Date: 20050509
  Transmission Date: 20051028
  Serious: Yes (Other)
  Sender: FDA-Public Use
  Company Number: 2005071205

PATIENT
  Age: 20 Year
  Sex: Female

DRUGS (2)
  1. ZITHROMAX [Suspect]
     Indication: PHARYNGOLARYNGEAL PAIN
     Dosage: 250 MG (250 MG, DAILY) UNKNOWN
  2. HOMEOPATHIC PREPARATION [Concomitant]

REACTIONS (3)
  - PHARYNGEAL OEDEMA [None]
  - TONSILLAR DISORDER [None]
  - TREATMENT NONCOMPLIANCE [None]
